FAERS Safety Report 5130010-0 (Version None)
Quarter: 2006Q4

REPORT INFORMATION
  Report Type: 
  Country: None (occurrence: None)
  Receive Date: 20061013
  Receipt Date: 20060927
  Transmission Date: 20070319
  Serious: Yes (Other)
  Sender: FDA-Public Use
  Company Number: 230882

PATIENT
  Age: 77 Year
  Sex: Female

DRUGS (2)
  1. HERCEPTIN [Suspect]
     Indication: BREAST CANCER
     Dosage: 1/WEEK, INTRAVENOUS
     Route: 042
     Dates: start: 20060816
  2. TAXOL [Concomitant]

REACTIONS (1)
  - NEPHRITIS INTERSTITIAL [None]
